FAERS Safety Report 4827561-2 (Version None)
Quarter: 2005Q4

REPORT INFORMATION
  Report Type: 
  Country: None (occurrence: None)
  Receive Date: 20051114
  Receipt Date: 20051109
  Transmission Date: 20060501
  Serious: Yes (Death, Hospitalization)
  Sender: FDA-Public Use
  Company Number: 2005UW17059

PATIENT
  Age: 44 Year
  Sex: Female
  Weight: 86.2 kg

DRUGS (2)
  1. ATACAND [Suspect]
     Route: 048
  2. TOPROL-XL [Suspect]
     Route: 048

REACTIONS (5)
  - BRADYCARDIA [None]
  - DEATH [None]
  - DRUG TOXICITY [None]
  - OVERDOSE [None]
  - SHOCK [None]
